FAERS Safety Report 6301263-8 (Version None)
Quarter: 2009Q3

REPORT INFORMATION
  Report Type: 
  Country: None (occurrence: None)
  Receive Date: 20090807
  Receipt Date: 20090804
  Transmission Date: 20100115
  Serious: Yes (Hospitalization)
  Sender: FDA-Public Use
  Company Number: FR-BAYER-200927456GPV

PATIENT
  Age: 72 Year
  Sex: Male

DRUGS (4)
  1. CIFLOX [Suspect]
     Indication: HYPERTHERMIA
     Route: 042
     Dates: start: 20090521, end: 20090526
  2. RIFAMPICIN [Suspect]
     Indication: DRUG USE FOR UNKNOWN INDICATION
     Route: 048
     Dates: start: 20090511, end: 20090524
  3. TARGOCID [Suspect]
     Indication: DRUG USE FOR UNKNOWN INDICATION
     Route: 042
     Dates: start: 20090511, end: 20090524
  4. TAZOCILLINE [Suspect]
     Indication: HYPERTHERMIA
     Route: 042
     Dates: start: 20090521, end: 20090526

REACTIONS (1)
  - PANCYTOPENIA [None]
